FAERS Safety Report 4508024-0 (Version None)
Quarter: 2004Q4

REPORT INFORMATION
  Report Type: 
  Country: None (occurrence: None)
  Receive Date: 20041123
  Receipt Date: 20020711
  Transmission Date: 20050328
  Serious: No
  Sender: FDA-Public Use
  Company Number: US-GLAXOSMITHKLINE-A0374355A

PATIENT
  Age: 56 Year
  Sex: Female
  Weight: 82.3 kg

DRUGS (11)
  1. WELLBUTRIN [Suspect]
     Indication: DEPRESSION
     Dosage: 150MG TWICE PER DAY
     Route: 048
     Dates: start: 20011031, end: 20020323
  2. GLUCOPHAGE [Concomitant]
  3. AMARYL [Concomitant]
  4. AVANDIA [Concomitant]
  5. CALCIUM [Concomitant]
  6. VITAMIN [Concomitant]
  7. PRINIVIL [Concomitant]
  8. LEVOXYL [Concomitant]
  9. UNKNOWN MEDICATION [Concomitant]
  10. LANTUS [Concomitant]
     Route: 065
  11. PAXIL [Concomitant]
     Route: 048

REACTIONS (7)
  - ABDOMINAL DISCOMFORT [None]
  - ABDOMINAL PAIN UPPER [None]
  - ERUCTATION [None]
  - FOOD INTOLERANCE [None]
  - HEPATOCELLULAR DAMAGE [None]
  - IMPAIRED GASTRIC EMPTYING [None]
  - WEIGHT DECREASED [None]
